FAERS Safety Report 8002792-1 (Version None)
Quarter: 2011Q4

REPORT INFORMATION
  Report Type: 
  Country: None (occurrence: None)
  Receive Date: 20111219
  Receipt Date: 20111209
  Transmission Date: 20120403
  Serious: Yes (Hospitalization, Other)
  Sender: FDA-Public Use
  Company Number: AUR-APL-2011-05926

PATIENT
  Age: 52 Year
  Sex: Female

DRUGS (12)
  1. CARBAMAZEPINE [Suspect]
     Indication: EPILEPSY
     Dosage: 600 MG
  2. BENDROFLUMETHIAZIDE (BENDROFLUMETHIAZIDE) [Suspect]
     Indication: PRODUCT USED FOR UNKNOWN INDICATION
     Dosage: UNKNOWN
  3. METFORMIN HCL [Concomitant]
  4. DIPYRIDAMOLE [Concomitant]
  5. CITALOPRAM HYDROBROMIDE [Suspect]
     Indication: PRODUCT USED FOR UNKNOWN INDICATION
     Dosage: UNKNOWN
  6. ATENOLOL [Concomitant]
  7. LAMOTRIGINE [Suspect]
     Indication: EPILEPSY
  8. ASPIRIN [Concomitant]
  9. AMLOIDPINE (AMLODIPINE) [Concomitant]
  10. ATORVASTATIN [Concomitant]
  11. GLICLAZIDE (GLICLAZIDE) [Concomitant]
  12. ENALAPRIL MALEATE [Concomitant]

REACTIONS (19)
  - HYPOKALAEMIA [None]
  - HYPERREFLEXIA [None]
  - BLOOD LACTIC ACID INCREASED [None]
  - ENTEROCOCCAL INFECTION [None]
  - HYPERAMMONAEMIA [None]
  - HYPONATRAEMIA [None]
  - LETHARGY [None]
  - BLOOD UREA DECREASED [None]
  - BLOOD GLUCOSE INCREASED [None]
  - COORDINATION ABNORMAL [None]
  - BLOOD ALBUMIN DECREASED [None]
  - SOMNOLENCE [None]
  - MUSCULAR WEAKNESS [None]
  - CONFUSIONAL STATE [None]
  - POLLAKIURIA [None]
  - NEUTROPHILIA [None]
  - URINARY TRACT INFECTION [None]
  - BLOOD PRESSURE INCREASED [None]
  - VULVOVAGINAL DISCOMFORT [None]
